FAERS Safety Report 5704667-7 (Version None)
Quarter: 2008Q2

REPORT INFORMATION
  Report Type: 
  Country: None (occurrence: None)
  Receive Date: 20080414
  Receipt Date: 20080408
  Transmission Date: 20081010
  Serious: Yes (Hospitalization, Other)
  Sender: FDA-Public Use
  Company Number: US-AVENTIS-200812202US

PATIENT
  Sex: Female

DRUGS (15)
  1. LANTUS [Suspect]
     Route: 058
     Dates: start: 20030101
  2. OPTICLIK (INSULIN INJECTION PEN) [Suspect]
     Dates: start: 20030101
  3. NITRO                              /00003201/ [Concomitant]
     Dosage: DOSE: UNK
  4. OMEPRAZOLE [Concomitant]
     Dosage: DOSE: UNK
  5. ELMIRON [Concomitant]
     Dosage: DOSE: UNK
  6. TRICOR                             /00090101/ [Concomitant]
     Dosage: DOSE: UNK
  7. CICLOPIROX [Concomitant]
     Dosage: DOSE: UNK
  8. SULFAMETHOXAZOLE AND TRIMETHOPRIM [Concomitant]
     Dosage: DOSE: UNK
  9. GABAPENTIN [Concomitant]
     Dosage: DOSE: UNK
  10. TRIAMTERENE AND HYDROCHLOROTHIAZIDE [Concomitant]
     Dosage: DOSE: UNK
  11. ^PHENAZOPYRID^ [Concomitant]
     Dosage: DOSE: UNK
  12. AMITRIPTYLINE HCL [Concomitant]
     Dosage: DOSE: UNK
  13. HUMALOG [Concomitant]
     Dosage: DOSE: UNI
  14. UREACIN [Concomitant]
     Dosage: DOSE: UNK
  15. ^AGMATINE^ [Concomitant]
     Dosage: DOSE: UNK

REACTIONS (4)
  - DIABETIC FOOT [None]
  - ERYTHEMA [None]
  - OEDEMA PERIPHERAL [None]
  - OSTEOMYELITIS [None]
